FAERS Safety Report 4844959-7 (Version None)
Quarter: 2005Q4

REPORT INFORMATION
  Report Type: 
  Country: None (occurrence: None)
  Receive Date: 20051202
  Receipt Date: 20051202
  Transmission Date: 20060501
  Serious: Yes (Hospitalization, Other)
  Sender: FDA-Public Use
  Company Number: None

PATIENT
  Sex: Female
  Weight: 60 kg

DRUGS (2)
  1. TEMOZOLOMIDE [Suspect]
     Indication: GLIOBLASTOMA MULTIFORME
     Dates: start: 20050918, end: 20051028
  2. RADIATION THERAPY [Suspect]
     Dosage: SEE IMAGE
     Dates: start: 20050918

REACTIONS (10)
  - ABASIA [None]
  - ABSCESS [None]
  - BACTERIAL INFECTION [None]
  - BALANCE DISORDER [None]
  - DYSSTASIA [None]
  - HEADACHE [None]
  - NERVOUS SYSTEM DISORDER [None]
  - NUCLEAR MAGNETIC RESONANCE IMAGING ABNORMAL [None]
  - OEDEMA [None]
  - SPEECH DISORDER [None]
